FAERS Safety Report 25870121 (Version 1)
Quarter: 2025Q4

REPORT INFORMATION
  Report Type: Spontaneous
  Country: TW (occurrence: TW)
  Receive Date: 20251001
  Receipt Date: 20251001
  Transmission Date: 20260119
  Serious: Yes (Life-Threatening, Hospitalization, Other)
  Sender: FRESENIUS KABI
  Company Number: TW-FreseniusKabi-FK202513387

PATIENT
  Age: 49 Year
  Sex: Female
  Weight: 56 kg

DRUGS (26)
  1. CISATRACURIUM [Suspect]
     Active Substance: CISATRACURIUM
     Indication: General anaesthesia
     Dosage: (FIRST ANESTHESIA)?DOSE: 12+12 MG?ANESTHESIA INDUCTION, WHICH INCLUDED 12 MG OF DOSE.?DURING THE PER
  2. CISATRACURIUM [Suspect]
     Active Substance: CISATRACURIUM
     Indication: Laryngeal mask airway insertion
     Dosage: (THIRD ANESTHESIA)- NO AE
  3. CISATRACURIUM [Suspect]
     Active Substance: CISATRACURIUM
     Dosage: (FOURTH ANESTHESIA)?DOSE: 6+16 MG?6 MG WAS ADMINISTERED DURING INDUCTION. AFTER SURGERY, THE LMA WAS
  4. FENTANYL [Concomitant]
     Active Substance: FENTANYL
     Indication: General anaesthesia
     Dosage: (THIRD ANESTHESIA)
  5. FENTANYL [Concomitant]
     Active Substance: FENTANYL
     Dosage: (FOURTH ANESTHESIA)
  6. FENTANYL [Concomitant]
     Active Substance: FENTANYL
     Dosage: (FIRST ANESTHESIA)
  7. LIDOCAINE [Concomitant]
     Active Substance: LIDOCAINE
     Indication: General anaesthesia
     Dosage: (FOURTH ANESTHESIA)
  8. LIDOCAINE [Concomitant]
     Active Substance: LIDOCAINE
     Dosage: (FIRST ANESTHESIA)
  9. LIDOCAINE [Concomitant]
     Active Substance: LIDOCAINE
     Dosage: (SECOND ANESTHESIA)
  10. LIDOCAINE [Concomitant]
     Active Substance: LIDOCAINE
     Dosage: (THIRD ANESTHESIA)
  11. PROPOFOL [Concomitant]
     Active Substance: PROPOFOL
     Indication: General anaesthesia
     Dosage: (FIRST ANESTHESIA)
  12. PROPOFOL [Concomitant]
     Active Substance: PROPOFOL
     Dosage: (SECOND ANESTHESIA)
  13. PROPOFOL [Concomitant]
     Active Substance: PROPOFOL
     Dosage: (THIRD ANESTHESIA)
  14. PROPOFOL [Concomitant]
     Active Substance: PROPOFOL
     Dosage: (FOURTH ANESTHESIA)
  15. SEVOFLURANE [Concomitant]
     Active Substance: SEVOFLURANE
     Indication: General anaesthesia
     Dosage: (FIRST ANESTHESIA)
  16. SEVOFLURANE [Concomitant]
     Active Substance: SEVOFLURANE
     Dosage: (SECOND ANESTHESIA)
  17. DESFLURANE [Concomitant]
     Active Substance: DESFLURANE
     Indication: General anaesthesia
     Dosage: (THIRD ANESTHESIA)
  18. DESFLURANE [Concomitant]
     Active Substance: DESFLURANE
     Dosage: (FOURTH ANESTHESIA)
  19. DEXAMETHASONE [Concomitant]
     Active Substance: DEXAMETHASONE
     Indication: General anaesthesia
     Dosage: (FIRST ANESTHESIA)
  20. DEXAMETHASONE [Concomitant]
     Active Substance: DEXAMETHASONE
     Dosage: (SECOND ANESTHESIA)
  21. DEXAMETHASONE [Concomitant]
     Active Substance: DEXAMETHASONE
     Dosage: (THIRD ANESTHESIA)
  22. DEXAMETHASONE [Concomitant]
     Active Substance: DEXAMETHASONE
     Dosage: (FOURTH ANESTHESIA)
  23. CEFAZOLIN [Concomitant]
     Active Substance: CEFAZOLIN
     Indication: General anaesthesia
     Dosage: (FIRST ANESTHESIA)
  24. CEFAZOLIN [Concomitant]
     Active Substance: CEFAZOLIN
     Dosage: (SECOND ANESTHESIA)
  25. CEFAZOLIN [Concomitant]
     Active Substance: CEFAZOLIN
     Dosage: (THIRD ANESTHESIA)
  26. CEFAZOLIN [Concomitant]
     Active Substance: CEFAZOLIN
     Dosage: (FOURTH ANESTHESIA)

REACTIONS (1)
  - Anaphylactic shock [Recovered/Resolved]
